FAERS Safety Report 5234853-4 (Version None)
Quarter: 2007Q1

REPORT INFORMATION
  Report Type: 
  Country: None (occurrence: None)
  Receive Date: 20070209
  Receipt Date: 20070202
  Transmission Date: 20070707
  Serious: Yes (Other)
  Sender: FDA-Public Use
  Company Number: JP-PFIZER INC-2007007677

PATIENT
  Sex: Female

DRUGS (5)
  1. ZOLOFT [Suspect]
     Indication: DEPRESSION
     Dosage: DAILY DOSE:75MG
     Route: 048
     Dates: start: 20061218, end: 20070118
  2. DEPAS [Suspect]
     Indication: ANXIETY
     Dosage: DAILY DOSE:1MG-FREQ:FREQUENCY: BID
  3. AMOBAN [Suspect]
     Indication: INSOMNIA
     Dosage: DAILY DOSE:7.5MG-FREQ:FREQUENCY: QD
  4. HALCION [Concomitant]
  5. ROHYPNOL [Concomitant]

REACTIONS (5)
  - CONVERSION DISORDER [None]
  - CONVULSION [None]
  - DEPRESSED LEVEL OF CONSCIOUSNESS [None]
  - FALL [None]
  - JOINT DISLOCATION [None]
